FAERS Safety Report 17749397 (Version 5)
Quarter: 2020Q3

REPORT INFORMATION
  Report Type: Spontaneous
  Country: RU (occurrence: RU)
  Receive Date: 20200506
  Receipt Date: 20200724
  Transmission Date: 20201102
  Serious: Yes (Other)
  Sender: FDA-Public Use
  Company Number: RU-BIOGEN-2020BI00869991

PATIENT
  Sex: Male

DRUGS (1)
  1. TYSABRI [Suspect]
     Active Substance: NATALIZUMAB
     Indication: RELAPSING-REMITTING MULTIPLE SCLEROSIS
     Route: 065
     Dates: start: 201902

REACTIONS (3)
  - Arthropathy [Unknown]
  - Infected fistula [Unknown]
  - Desmoid tumour [Unknown]
